FAERS Safety Report 7368539-7 (Version None)
Quarter: 2011Q1

REPORT INFORMATION
  Report Type: 
  Country: None (occurrence: None)
  Receive Date: 20110311
  Receipt Date: 20110224
  Transmission Date: 20110831
  Serious: Yes (Other)
  Sender: FDA-Public Use
  Company Number: 2011SP008821

PATIENT
  Age: 44 Year
  Sex: Female

DRUGS (4)
  1. BENADRYL [Concomitant]
  2. LINESSA [Concomitant]
  3. EPIPEN [Concomitant]
  4. AERIUS (DESLORATADINE /01398501/) [Suspect]
     Indication: PRODUCT USED FOR UNKNOWN INDICATION
     Dosage: 1 DF; ONCE; PO
     Route: 048

REACTIONS (9)
  - ABDOMINAL DISCOMFORT [None]
  - MALAISE [None]
  - DYSPNOEA [None]
  - DYSPEPSIA [None]
  - PHARYNGEAL OEDEMA [None]
  - DYSPHAGIA [None]
  - VOMITING [None]
  - ANAPHYLACTIC REACTION [None]
  - THROAT IRRITATION [None]
